FAERS Safety Report 20520388 (Version 1)
Quarter: 2022Q1

REPORT INFORMATION
  Report Type: Spontaneous
  Country: US (occurrence: None)
  Receive Date: 20220225
  Receipt Date: 20220225
  Transmission Date: 20220423
  Serious: Yes (Death)
  Sender: FDA-Public Use
  Company Number: None

PATIENT
  Age: 70 Year
  Sex: Female

DRUGS (2)
  1. TACROLIMUS [Suspect]
     Active Substance: TACROLIMUS
     Indication: Lung transplant
     Dosage: OTHER QUANTITY : 1.5MG AM + 1 MG PM;?FREQUENCY : TWICE A DAY;?
     Route: 048
     Dates: start: 20140312, end: 20211205
  2. MYCOPHENOLIC ACID [Suspect]
     Active Substance: MYCOPHENOLIC ACID
     Indication: Lung transplant
     Dosage: FREQUENCY : TWICE A DAY;?
     Route: 048
     Dates: start: 20140312, end: 20211205

REACTIONS (2)
  - Lung transplant rejection [None]
  - Respiratory failure [None]

NARRATIVE: CASE EVENT DATE: 20211205
